FAERS Safety Report 22633137 (Version 2)
Quarter: 2023Q2

REPORT INFORMATION
  Report Type: Spontaneous
  Country: RU (occurrence: RU)
  Receive Date: 20230623
  Receipt Date: 20230629
  Transmission Date: 20230721
  Serious: Yes (Death, Other)
  Sender: FDA-Public Use
  Company Number: RU-AMGEN-RUSSP2023107745

PATIENT

DRUGS (1)
  1. BLINCYTO [Suspect]
     Active Substance: BLINATUMOMAB
     Indication: B precursor type acute leukaemia
     Dosage: UNK
     Route: 065

REACTIONS (4)
  - Death [Fatal]
  - B precursor type acute leukaemia [Unknown]
  - Venoocclusive liver disease [Unknown]
  - Venoocclusive disease [Unknown]
